FAERS Safety Report 10401009 (Version 2)
Quarter: 2014Q3

REPORT INFORMATION
  Report Type: Spontaneous
  Country: US (occurrence: US)
  Receive Date: 20140821
  Receipt Date: 20140821
  Transmission Date: 20150326
  Serious: Yes (Hospitalization, Disabling, Other)
  Sender: FDA-Public Use
  Company Number: US-009507513-2008-177156-NL

PATIENT
  Sex: Female
  Weight: 83.9 kg

DRUGS (1)
  1. NUVARING [Suspect]
     Active Substance: ETHINYL ESTRADIOL\ETONOGESTREL
     Indication: CONTRACEPTION
     Dosage: DOSE TEXT: 3 WEEKS IN / 1 WEEK OUT, CONTINUING: NO
     Route: 067
     Dates: start: 200411, end: 200605

REACTIONS (9)
  - Deep vein thrombosis [Unknown]
  - Back pain [Unknown]
  - Vena cava filter insertion [Unknown]
  - Craniectomy [Recovering/Resolving]
  - Cerebrovascular accident [Recovered/Resolved with Sequelae]
  - Headache [Recovered/Resolved]
  - Gastrostomy [Unknown]
  - Craniectomy [Unknown]
  - Blood pressure diastolic increased [Unknown]

NARRATIVE: CASE EVENT DATE: 200411
